FAERS Safety Report 21109142 (Version 2)
Quarter: 2022Q3

REPORT INFORMATION
  Report Type: Spontaneous
  Country: JP (occurrence: JP)
  Receive Date: 20220721
  Receipt Date: 20220805
  Transmission Date: 20221027
  Serious: Yes (Hospitalization, Other)
  Sender: FDA-Public Use
  Company Number: JP-NBI-S202200160BIPI

PATIENT
  Age: 83 Year
  Sex: Female

DRUGS (1)
  1. JARDIANCE [Suspect]
     Active Substance: EMPAGLIFLOZIN
     Indication: Cardiac failure
     Route: 065

REACTIONS (1)
  - Euglycaemic diabetic ketoacidosis [Recovering/Resolving]
